FAERS Safety Report 5455754-2 (Version None)
Quarter: 2007Q3

REPORT INFORMATION
  Report Type: 
  Country: None (occurrence: None)
  Receive Date: 20070918
  Receipt Date: 20070702
  Transmission Date: 20080115
  Serious: Yes (Other)
  Sender: FDA-Public Use
  Company Number: US-ASTRAZENECA-2006UW22689

PATIENT
  Age: 572 Month
  Sex: Male
  Weight: 89.1 kg

DRUGS (5)
  1. SEROQUEL [Suspect]
     Indication: SCHIZOPHRENIA
     Route: 048
     Dates: start: 20040401
  2. SEROQUEL [Suspect]
     Indication: DEPRESSION
     Route: 048
     Dates: start: 20040401
  3. PROZAC [Concomitant]
     Indication: DEPRESSION
     Dates: start: 20030101
  4. HALDOL [Concomitant]
     Dates: start: 20060801
  5. RISPERDAL [Concomitant]
     Dates: start: 20060801

REACTIONS (2)
  - DIABETES MELLITUS [None]
  - PANCREATITIS [None]
